FAERS Safety Report 7235910-3 (Version None)
Quarter: 2011Q1

REPORT INFORMATION
  Report Type: 
  Country: None (occurrence: None)
  Receive Date: 20110120
  Receipt Date: 20110112
  Transmission Date: 20110831
  Serious: Yes (Hospitalization)
  Sender: FDA-Public Use
  Company Number: A0750076A

PATIENT
  Age: 57 Year
  Sex: Male
  Weight: 95.5 kg

DRUGS (9)
  1. METFORMIN [Concomitant]
  2. AVANDIA [Suspect]
     Indication: DIABETES MELLITUS
     Dosage: 8MG PER DAY
     Route: 048
     Dates: start: 20030222, end: 20070101
  3. ALLOPURINOL [Concomitant]
  4. TRICOR [Concomitant]
  5. CLONIDINE HCL [Concomitant]
  6. FELODIPINE [Concomitant]
  7. GLUCOPHAGE [Concomitant]
  8. PRAVASTATIN [Concomitant]
  9. ATACAND [Concomitant]

REACTIONS (1)
  - MYOCARDIAL INFARCTION [None]
